FAERS Safety Report 9191272 (Version 2)
Quarter: 2013Q2

REPORT INFORMATION
  Report Type: Spontaneous
  Country: US (occurrence: US)
  Receive Date: 20130326
  Receipt Date: 20130506
  Transmission Date: 20140414
  Serious: No
  Sender: FDA-Public Use
  Company Number: US-PFIZER INC-2013095219

PATIENT
  Sex: Female

DRUGS (2)
  1. CHANTIX [Suspect]
     Indication: SMOKING CESSATION THERAPY
     Dosage: UNK
     Route: 048
     Dates: start: 201112, end: 201112
  2. NICOTINE [Suspect]
     Indication: SMOKING CESSATION THERAPY
     Dosage: ONE PATCH AT AN UNKNOWN FREQUENCY

REACTIONS (12)
  - Activities of daily living impaired [Unknown]
  - Gait disturbance [Unknown]
  - Hypersensitivity [Unknown]
  - Nightmare [Unknown]
  - Abnormal dreams [Unknown]
  - Asthenia [Unknown]
  - Somnolence [Unknown]
  - Fatigue [Unknown]
  - Dizziness [Unknown]
  - Feeling abnormal [Unknown]
  - Erythema [Unknown]
  - Product adhesion issue [Unknown]
